FAERS Safety Report 6168322-4 (Version None)
Quarter: 2009Q2

REPORT INFORMATION
  Report Type: 
  Country: None (occurrence: None)
  Receive Date: 20090423
  Receipt Date: 20090324
  Transmission Date: 20091009
  Serious: Yes (Other)
  Sender: FDA-Public Use
  Company Number: GXKR2009GB03142

PATIENT
  Age: 50 Year
  Sex: Male
  Weight: 53.5 kg

DRUGS (3)
  1. METFORMIN (NGX) (METFORMIN) [Suspect]
     Indication: DIABETES MELLITUS
     Dosage: 2 DF BID ORAL
     Route: 048
     Dates: start: 20090303, end: 20090303
  2. GLICLAZIDE (GLICLAZIDE) [Concomitant]
  3. SODIUM CHLORIDE 0.9% [Concomitant]

REACTIONS (1)
  - BLISTER INFECTED [None]
